FAERS Safety Report 8623933-9 (Version None)
Quarter: 2012Q3

REPORT INFORMATION
  Report Type: 
  Country: None (occurrence: None)
  Receive Date: 20120827
  Receipt Date: 20120822
  Transmission Date: 20120928
  Serious: Yes (Other)
  Sender: FDA-Public Use
  Company Number: PHHY2011CA77697

PATIENT
  Sex: Female

DRUGS (2)
  1. ESTRIOL [Concomitant]
  2. GILENYA [Suspect]
     Indication: RELAPSING-REMITTING MULTIPLE SCLEROSIS
     Dosage: 0.5 MG, DAILY
     Route: 048
     Dates: start: 20110816

REACTIONS (4)
  - MUSCULOSKELETAL STIFFNESS [None]
  - ELECTROCARDIOGRAM QT PROLONGED [None]
  - OROPHARYNGEAL PAIN [None]
  - MOBILITY DECREASED [None]
